FAERS Safety Report 10503497 (Version 1)
Quarter: 2014Q4

REPORT INFORMATION
  Report Type: Spontaneous
  Country: US (occurrence: US)
  Receive Date: 20141008
  Receipt Date: 20141008
  Transmission Date: 20150528
  Serious: No
  Sender: FDA-Public Use
  Company Number: US-BIOGENIDEC-2014BI100621

PATIENT
  Age: 66 Year
  Sex: Female

DRUGS (3)
  1. TECFIDERA [Suspect]
     Active Substance: DIMETHYL FUMARATE
     Indication: MULTIPLE SCLEROSIS
     Route: 048
     Dates: start: 20140911
  2. VITAMIN D [Concomitant]
     Active Substance: CHOLECALCIFEROL
  3. TAPAZOLE [Concomitant]
     Active Substance: METHIMAZOLE

REACTIONS (1)
  - Micturition urgency [Unknown]
